FAERS Safety Report 5899095-8 (Version None)
Quarter: 2008Q3

REPORT INFORMATION
  Report Type: 
  Country: None (occurrence: None)
  Receive Date: 20080925
  Receipt Date: 20080915
  Transmission Date: 20090109
  Serious: Yes (Other)
  Sender: FDA-Public Use
  Company Number: FR-ELI_LILLY_AND_COMPANY-FR200809003455

PATIENT
  Age: 78 Year
  Sex: Female

DRUGS (3)
  1. CYMBALTA [Suspect]
     Indication: DEPRESSION
     Dosage: 60 MG, DAILY (1/D)
     Route: 048
     Dates: start: 20080101, end: 20080101
  2. MODOPAR [Concomitant]
     Indication: PARKINSON'S DISEASE
     Dosage: UNK, UNKNOWN
     Route: 048
  3. TRIVASTAL [Concomitant]
     Indication: PARKINSON'S DISEASE
     Dosage: UNK, UNKNOWN
     Route: 048

REACTIONS (4)
  - BLOOD PRESSURE DECREASED [None]
  - DIARRHOEA [None]
  - LOSS OF CONSCIOUSNESS [None]
  - VOMITING [None]
